FAERS Safety Report 11783055 (Version 1)
Quarter: 2015Q4

REPORT INFORMATION
  Report Type: Spontaneous
  Country: US (occurrence: US)
  Receive Date: 20151127
  Receipt Date: 20151127
  Transmission Date: 20160305
  Serious: Yes (Death)
  Sender: FDA-Public Use
  Company Number: US-MEDA-2015110111

PATIENT
  Age: 60 Year
  Sex: Male

DRUGS (7)
  1. GABAPENTIN. [Suspect]
     Active Substance: GABAPENTIN
  2. DIAZEPAM. [Suspect]
     Active Substance: DIAZEPAM
  3. METHADONE [Suspect]
     Active Substance: METHADONE HYDROCHLORIDE
  4. OXYMORPHONE [Suspect]
     Active Substance: OXYMORPHONE
  5. ZOLPIDEM [Suspect]
     Active Substance: ZOLPIDEM\ZOLPIDEM TARTRATE
  6. NORDIAZEPAM [Suspect]
     Active Substance: NORDAZEPAM
  7. METAXALONE. [Suspect]
     Active Substance: METAXALONE

REACTIONS (1)
  - Accidental death [Fatal]
